FAERS Safety Report 4636766-5 (Version None)
Quarter: 2005Q2

REPORT INFORMATION
  Report Type: 
  Country: None (occurrence: None)
  Receive Date: 20050414
  Receipt Date: 20050401
  Transmission Date: 20051028
  Serious: Yes (Hospitalization, Other)
  Sender: FDA-Public Use
  Company Number: 2004241294US

PATIENT
  Age: 80 Year
  Sex: Female

DRUGS (5)
  1. BEXTRA [Suspect]
     Indication: ILL-DEFINED DISORDER
     Dosage: 10 MG (10 MG, 1 IN 1 D),
     Dates: start: 20030101
  2. CELEBREX [Suspect]
     Indication: ILL-DEFINED DISORDER
  3. DILTIAZEM HYDROCHLORIDE [Concomitant]
  4. FUROSEMIDE [Concomitant]
  5. LEVOTHYROXINE SODIUM [Concomitant]

REACTIONS (12)
  - ARTHRITIS [None]
  - CONTUSION [None]
  - DIALYSIS [None]
  - DISCOMFORT [None]
  - FEELING ABNORMAL [None]
  - HEADACHE [None]
  - INFECTION [None]
  - LIMB INJURY [None]
  - LUNG DISORDER [None]
  - POISONING [None]
  - RENAL DISORDER [None]
  - SKIN DISCOLOURATION [None]
